FAERS Safety Report 7091794-8 (Version None)
Quarter: 2011Q1

REPORT INFORMATION
  Report Type: 
  Country: None (occurrence: None)
  Receive Date: 20101101
  Receipt Date: 20101019
  Transmission Date: 20110831
  Serious: Yes (Hospitalization)
  Sender: FDA-Public Use
  Company Number: LMI-2010-00930

PATIENT
  Age: 58 Year
  Sex: Male
  Weight: 89.8122 kg

DRUGS (2)
  1. DEFINITY [Suspect]
     Indication: STRESS ECHOCARDIOGRAM
     Dates: start: 20100929, end: 20100929
  2. DEFINITY [Suspect]
     Indication: LIVER TRANSPLANT
     Dates: start: 20100929, end: 20100929

REACTIONS (3)
  - BACK PAIN [None]
  - CEREBROVASCULAR ACCIDENT [None]
  - HEADACHE [None]
